FAERS Safety Report 5914589-4 (Version None)
Quarter: 2008Q4

REPORT INFORMATION
  Report Type: 
  Country: None (occurrence: None)
  Receive Date: 20081008
  Receipt Date: 20080925
  Transmission Date: 20090506
  Serious: Yes (Hospitalization)
  Sender: FDA-Public Use
  Company Number: 239202J08USA

PATIENT
  Age: 58 Year
  Sex: Female
  Weight: 98 kg

DRUGS (5)
  1. REBIF [Suspect]
     Indication: MULTIPLE SCLEROSIS
     Dosage: 44 MCG, 3 IN 1 WEEKS, SUBCUTANEOUS
     Route: 058
     Dates: start: 20080626
  2. WELLBUTRIN [Concomitant]
  3. PREMARIN HORMONE (ESTROGENS CONJUGATED) [Suspect]
  4. MICARDIS [Concomitant]
  5. AMBIEN CR [Concomitant]

REACTIONS (3)
  - MUSCULOSKELETAL PAIN [None]
  - NAUSEA [None]
  - PNEUMONIA [None]
